FAERS Safety Report 7735418-2 (Version None)
Quarter: 2011Q3

REPORT INFORMATION
  Report Type: 
  Country: None (occurrence: None)
  Receive Date: 20110907
  Receipt Date: 20110830
  Transmission Date: 20111222
  Serious: Yes (Other)
  Sender: FDA-Public Use
  Company Number: HU-JNJFOC-20110900354

PATIENT
  Age: 39 Year
  Sex: Male

DRUGS (2)
  1. INFLIXIMAB, RECOMBINANT [Suspect]
     Indication: POLYGLANDULAR AUTOIMMUNE SYNDROME TYPE III
     Route: 042
     Dates: start: 20081101
  2. INFLIXIMAB, RECOMBINANT [Suspect]
     Route: 042

REACTIONS (1)
  - B-CELL LYMPHOMA [None]
